FAERS Safety Report 16093356 (Version 1)
Quarter: 2019Q1

REPORT INFORMATION
  Report Type: Report from Study
  Country: FR (occurrence: FR)
  Receive Date: 20190320
  Receipt Date: 20190320
  Transmission Date: 20190418
  Serious: Yes (Congenital Anomaly, Other)
  Sender: FDA-Public Use
  Company Number: FR-ALVOGEN-2019-ALVOGEN-098898

PATIENT
  Sex: Female
  Weight: 2.2 kg

DRUGS (5)
  1. NORVIR [Suspect]
     Active Substance: RITONAVIR
     Indication: PRODUCT USED FOR UNKNOWN INDICATION
     Route: 064
     Dates: start: 20160501, end: 20170129
  2. EPZICOM [Suspect]
     Active Substance: ABACAVIR SULFATE\LAMIVUDINE
     Indication: PRODUCT USED FOR UNKNOWN INDICATION
     Route: 064
     Dates: start: 20160501, end: 20170129
  3. REYATAZ [Suspect]
     Active Substance: ATAZANAVIR SULFATE
     Indication: PRODUCT USED FOR UNKNOWN INDICATION
     Route: 064
     Dates: start: 20160501, end: 20170129
  4. PREZISTA [Suspect]
     Active Substance: DARUNAVIR ETHANOLATE
     Indication: PRODUCT USED FOR UNKNOWN INDICATION
     Route: 064
     Dates: start: 20160501, end: 20170129
  5. NEVIRAPINE. [Suspect]
     Active Substance: NEVIRAPINE
     Indication: PRODUCT USED FOR UNKNOWN INDICATION
     Route: 064

REACTIONS (9)
  - Foetal growth restriction [Unknown]
  - Acoustic stimulation tests abnormal [Unknown]
  - Eosinophilia [Unknown]
  - Supernumerary nipple [Unknown]
  - Foetal exposure during pregnancy [Unknown]
  - Ichthyosis [Unknown]
  - Dilatation ventricular [Unknown]
  - Congenital naevus [Unknown]
  - Low set ears [Unknown]
